FAERS Safety Report 8367517-9 (Version None)
Quarter: 2012Q2

REPORT INFORMATION
  Report Type: 
  Country: None (occurrence: None)
  Receive Date: 20120517
  Receipt Date: 20120412
  Transmission Date: 20120825
  Serious: No
  Sender: FDA-Public Use
  Company Number: US-GLAXOSMITHKLINE-A0974251A

PATIENT
  Age: 65 Year
  Sex: Male
  Weight: 81.8 kg

DRUGS (4)
  1. VOTRIENT [Suspect]
     Indication: PRODUCT USED FOR UNKNOWN INDICATION
     Dosage: 800MG PER DAY
     Route: 048
  2. IBUPROFEN [Concomitant]
  3. PROZAC [Concomitant]
  4. ZOFRAN [Concomitant]

REACTIONS (3)
  - DECREASED APPETITE [None]
  - VOMITING [None]
  - WEIGHT DECREASED [None]
